FAERS Safety Report 4760231-8 (Version None)
Quarter: 2005Q3

REPORT INFORMATION
  Report Type: 
  Country: None (occurrence: None)
  Receive Date: 20050902
  Receipt Date: 20050823
  Transmission Date: 20060218
  Serious: Yes (Hospitalization)
  Sender: FDA-Public Use
  Company Number: US-JNJFOC-20050805950

PATIENT
  Sex: Female

DRUGS (2)
  1. REMINYL [Suspect]
     Route: 048
  2. REMINYL [Suspect]
     Route: 048

REACTIONS (6)
  - ABASIA [None]
  - APRAXIA [None]
  - CONSTIPATION [None]
  - DIARRHOEA [None]
  - PSYCHOTIC DISORDER [None]
  - URINARY TRACT INFECTION [None]
